FAERS Safety Report 5832974-6 (Version None)
Quarter: 2008Q3

REPORT INFORMATION
  Report Type: 
  Country: None (occurrence: None)
  Receive Date: 20080804
  Receipt Date: 20080725
  Transmission Date: 20090109
  Serious: Yes (Hospitalization, Other)
  Sender: FDA-Public Use
  Company Number: US-ABBOTT-08P-163-0466122-00

PATIENT
  Age: 51 Year
  Sex: Female

DRUGS (6)
  1. VALPROATE SODIUM [Suspect]
     Indication: DRUG USE FOR UNKNOWN INDICATION
     Route: 065
  2. VALPROATE SODIUM [Suspect]
  3. OXCARBAZEPINE [Interacting]
     Indication: MANIA
     Route: 065
  4. OXCARBAZEPINE [Interacting]
  5. CLONAZEPAM [Concomitant]
     Indication: DRUG USE FOR UNKNOWN INDICATION
     Route: 065
  6. METFORMIN HCL [Concomitant]
     Indication: DRUG USE FOR UNKNOWN INDICATION

REACTIONS (8)
  - ATAXIA [None]
  - CATATONIA [None]
  - DRUG INTERACTION [None]
  - DRUG LEVEL ABOVE THERAPEUTIC [None]
  - DRUG LEVEL THERAPEUTIC [None]
  - INCONTINENCE [None]
  - OEDEMA [None]
  - THROMBOCYTOPENIA [None]
